FAERS Safety Report 8230193-X (Version None)
Quarter: 2012Q1

REPORT INFORMATION
  Report Type: 
  Country: None (occurrence: None)
  Receive Date: 20120321
  Receipt Date: 20120321
  Transmission Date: 20120608
  Serious: Yes (Other)
  Sender: FDA-Public Use
  Company Number: None

PATIENT
  Sex: Male
  Weight: 123.3784 kg

DRUGS (2)
  1. OPANA [Concomitant]
  2. OXYMORPHONE HYDROCHLORIDE [Suspect]
     Dosage: 10 MG PO TID CHRONIC PAIN
     Route: 048

REACTIONS (2)
  - ABDOMINAL DISCOMFORT [None]
  - PRODUCT FORMULATION ISSUE [None]
